FAERS Safety Report 15376515 (Version 1)
Quarter: 2018Q3

REPORT INFORMATION
  Report Type: Spontaneous
  Country: US (occurrence: US)
  Receive Date: 20180912
  Receipt Date: 20180912
  Transmission Date: 20181010
  Serious: Yes (Hospitalization)
  Sender: FDA-Public Use
  Company Number: US-CELGENEUS-USA-20180900580

PATIENT
  Age: 8 Year
  Sex: Female
  Weight: 24.6 kg

DRUGS (26)
  1. VENETOCLAX. [Suspect]
     Active Substance: VENETOCLAX
     Dosage: 170 MILLIGRAM
     Route: 065
     Dates: start: 20171207, end: 20180814
  2. MAGNESIUM [Concomitant]
     Active Substance: MAGNESIUM
     Indication: MINERAL SUPPLEMENTATION
     Dosage: 54 MILLIGRAM
     Route: 065
     Dates: start: 20171108
  3. ALLOPURINOL. [Concomitant]
     Active Substance: ALLOPURINOL
     Indication: PROPHYLAXIS
     Dosage: 900 MILLIGRAM
     Route: 065
     Dates: start: 20171113, end: 20171117
  4. VENETOCLAX. [Suspect]
     Active Substance: VENETOCLAX
     Dosage: 170 MILLIGRAM
     Route: 065
     Dates: start: 20171115, end: 20171115
  5. SULFAMETHOXAZOLE [Concomitant]
     Active Substance: SULFAMETHOXAZOLE
     Indication: PROPHYLAXIS
     Dosage: 60 MILLIGRAM
     Route: 065
     Dates: start: 20171108
  6. LORAZEPAM. [Concomitant]
     Active Substance: LORAZEPAM
     Indication: NAUSEA
     Dosage: 9.6 MILLIGRAM
     Route: 065
     Dates: start: 20171108
  7. CHOLECALCIFEROL [Concomitant]
     Active Substance: CHOLECALCIFEROL
     Indication: VITAMIN SUPPLEMENTATION
     Dosage: 2000 IU (INTERNATIONAL UNIT)
     Route: 065
     Dates: start: 20171108
  8. ALLOPURINOL. [Concomitant]
     Active Substance: ALLOPURINOL
     Dosage: 900 MILLIGRAM
     Route: 065
     Dates: start: 20171207, end: 20171208
  9. OMEPRAZOLE. [Concomitant]
     Active Substance: OMEPRAZOLE
     Indication: PROPHYLAXIS
     Dosage: 20 MILLIGRAM
     Route: 065
     Dates: start: 20171108
  10. ACETAMINOPHEN. [Concomitant]
     Active Substance: ACETAMINOPHEN
     Dosage: 116 MILLILITER
     Route: 065
     Dates: start: 20180721
  11. ALLOPURINOL. [Concomitant]
     Active Substance: ALLOPURINOL
     Dosage: 900 MILLIGRAM
     Route: 065
     Dates: start: 20180316, end: 20180321
  12. OLANZAPINE. [Concomitant]
     Active Substance: OLANZAPINE
     Indication: NAUSEA
     Dosage: 2 MILLIGRAM
     Route: 065
     Dates: start: 20180315
  13. VENETOCLAX. [Suspect]
     Active Substance: VENETOCLAX
     Indication: NEOPLASM MALIGNANT
     Dosage: 80 MILLIGRAM
     Route: 065
     Dates: start: 20171114, end: 20171114
  14. LORAZEPAM. [Concomitant]
     Active Substance: LORAZEPAM
     Indication: PROPHYLAXIS OF NAUSEA AND VOMITING
  15. ALLOPURINOL. [Concomitant]
     Active Substance: ALLOPURINOL
     Dosage: 900 MILLIGRAM
     Route: 065
     Dates: start: 20180721
  16. OLANZAPINE. [Concomitant]
     Active Substance: OLANZAPINE
     Indication: VOMITING
  17. ACYCLOVIR. [Concomitant]
     Active Substance: ACYCLOVIR
     Indication: ANTIVIRAL PROPHYLAXIS
     Dosage: 2000 MILLIGRAM
     Route: 065
     Dates: start: 20171108
  18. GRANISETRON [Concomitant]
     Active Substance: GRANISETRON
     Indication: NAUSEA
     Dosage: 4 MILLIGRAM
     Route: 065
     Dates: start: 20171108
  19. OXYCODONE [Concomitant]
     Active Substance: OXYCODONE
     Indication: PAIN
     Dosage: 2 MILLIGRAM
     Route: 065
     Dates: start: 20171110
  20. VIDAZA [Suspect]
     Active Substance: AZACITIDINE
     Indication: NEOPLASM MALIGNANT
     Dosage: 75 MILLIGRAM/SQ. METER
     Route: 041
     Dates: start: 20180112, end: 20180727
  21. VENETOCLAX. [Suspect]
     Active Substance: VENETOCLAX
     Dosage: 350 MILLIGRAM
     Route: 065
     Dates: start: 20171116, end: 20171206
  22. ENALAPRIL [Concomitant]
     Active Substance: ENALAPRIL
     Indication: CARDIAC FAILURE
     Dosage: 2 MILLIGRAM
     Route: 065
     Dates: start: 20171105
  23. ACETAMINOPHEN. [Concomitant]
     Active Substance: ACETAMINOPHEN
     Indication: PYREXIA
     Dosage: 256 MILLIGRAM
     Route: 065
     Dates: start: 20171231, end: 20180101
  24. LEVOFLOXACIN. [Concomitant]
     Active Substance: LEVOFLOXACIN
     Indication: ANTIBIOTIC PROPHYLAXIS
     Dosage: 880 MILLIGRAM
     Route: 065
     Dates: start: 20171121
  25. GRANISETRON [Concomitant]
     Active Substance: GRANISETRON
     Indication: PROPHYLAXIS OF NAUSEA AND VOMITING
  26. ALLOPURINOL. [Concomitant]
     Active Substance: ALLOPURINOL
     Dosage: 900 MILLIGRAM
     Route: 065
     Dates: start: 20180112, end: 20180113

REACTIONS (1)
  - Febrile neutropenia [Recovered/Resolved]

NARRATIVE: CASE EVENT DATE: 20180822
